FAERS Safety Report 4649138-4 (Version None)
Quarter: 2005Q2

REPORT INFORMATION
  Report Type: 
  Country: None (occurrence: None)
  Receive Date: 20050429
  Receipt Date: 20050422
  Transmission Date: 20051028
  Serious: Yes (Hospitalization)
  Sender: FDA-Public Use
  Company Number: B0379470A

PATIENT
  Sex: Female
  Weight: 99 kg

DRUGS (12)
  1. QUILONORM RETARD [Suspect]
     Indication: BIPOLAR DISORDER
     Dosage: 12.5MMOL UNKNOWN
     Route: 048
     Dates: end: 20030610
  2. ROFECOXIB [Suspect]
     Indication: ILL-DEFINED DISORDER
     Dosage: 50MG UNKNOWN
     Route: 048
     Dates: end: 20030602
  3. DICLOFENAC SODIUM [Suspect]
     Indication: ILL-DEFINED DISORDER
     Dosage: 50MG UNKNOWN
     Route: 048
     Dates: start: 20030602, end: 20030616
  4. HYDROCHLOROTHIAZIDE + LOSARTAN POTASSIUM [Suspect]
     Indication: ILL-DEFINED DISORDER
     Route: 048
     Dates: start: 20030605
  5. CLOMIPRAMINE [Concomitant]
     Dosage: 75MG PER DAY
     Route: 048
  6. MAPROTILINE [Concomitant]
     Dosage: 75MG PER DAY
     Route: 048
  7. BISOPROLOL FUMARATE [Concomitant]
     Dosage: 10MG PER DAY
     Route: 048
  8. AMLODIPINE [Concomitant]
     Dosage: 10MG PER DAY
     Route: 048
  9. PHENPROCOUMON [Concomitant]
     Route: 048
  10. NADROPARIN [Concomitant]
     Dosage: .6ML PER DAY
     Route: 058
     Dates: end: 20030725
  11. ESOMEPRAZOLE [Concomitant]
     Dosage: 10MG PER DAY
     Route: 048
     Dates: end: 20030725
  12. LOSARTAN POTASSIUM [Concomitant]
     Dosage: 50MG PER DAY
     Route: 048
     Dates: end: 20030605

REACTIONS (5)
  - AGITATION [None]
  - DRUG INTERACTION [None]
  - DRUG LEVEL INCREASED [None]
  - THERAPEUTIC AGENT TOXICITY [None]
  - TREMOR [None]
